FAERS Safety Report 6398293-7 (Version None)
Quarter: 2009Q4

REPORT INFORMATION
  Report Type: 
  Country: None (occurrence: None)
  Receive Date: 20091013
  Receipt Date: 20091001
  Transmission Date: 20100525
  Serious: Yes (Other)
  Sender: FDA-Public Use
  Company Number: TR-TYCO HEALTHCARE/MALLINCKRODT-T200901833

PATIENT
  Age: 41 Year
  Sex: Female

DRUGS (2)
  1. ANAFRANIL CAP [Suspect]
     Indication: OBSESSIVE-COMPULSIVE DISORDER
     Dosage: 1500 MG, (TOOK (20) 75 MG SR TABLETS)
  2. ANAFRANIL CAP [Suspect]
     Dosage: 150 MG, QD

REACTIONS (9)
  - BLOOD CREATININE INCREASED [None]
  - GRAND MAL CONVULSION [None]
  - INTENTIONAL OVERDOSE [None]
  - OVERDOSE [None]
  - PALPITATIONS [None]
  - SINUS TACHYCARDIA [None]
  - SUICIDE ATTEMPT [None]
  - URINE OUTPUT DECREASED [None]
  - VOMITING [None]
